FAERS Safety Report 9888034 (Version 2)
Quarter: 2014Q1

REPORT INFORMATION
  Report Type: Spontaneous
  Country: US (occurrence: US)
  Receive Date: 20140211
  Receipt Date: 20140219
  Transmission Date: 20141002
  Serious: Yes (Hospitalization, Other)
  Sender: FDA-Public Use
  Company Number: US-PFIZER INC-2014036013

PATIENT
  Age: 59 Year
  Sex: Female
  Weight: 84 kg

DRUGS (2)
  1. GABAPENTIN [Suspect]
     Dosage: 90 G (30 CAPSULES OF 300 MG) ABOUT 1070 MG/KG
     Route: 048
  2. HYDROCODONE W/ACETAMINOPHEN [Suspect]
     Dosage: 4 TABLETS OF 5/325 MG
     Route: 048

REACTIONS (5)
  - Intentional overdose [Unknown]
  - Suicide attempt [Unknown]
  - Drug level above therapeutic [Unknown]
  - Nausea [Unknown]
  - Sedation [Unknown]
